FAERS Safety Report 4843561-0 (Version None)
Quarter: 2005Q4

REPORT INFORMATION
  Report Type: 
  Country: None (occurrence: None)
  Receive Date: 20051202
  Receipt Date: 20051121
  Transmission Date: 20060501
  Serious: Yes (Other)
  Sender: FDA-Public Use
  Company Number: GB-ABBOTT-05P-167-0317920-00

PATIENT
  Age: 33 Year
  Sex: Female
  Weight: 60 kg

DRUGS (2)
  1. ERYTHROMYCIN [Suspect]
     Indication: ACNE
     Route: 048
     Dates: start: 20040101, end: 20051011
  2. CETIRIZINE HCL [Suspect]
     Indication: PRURITUS
     Route: 048
     Dates: start: 20040101, end: 20051011

REACTIONS (1)
  - ABORTION [None]
